FAERS Safety Report 4598155-1 (Version None)
Quarter: 2005Q1

REPORT INFORMATION
  Report Type: 
  Country: None (occurrence: None)
  Receive Date: 20050301
  Receipt Date: 20050301
  Transmission Date: 20050727
  Serious: Yes (Death)
  Sender: FDA-Public Use
  Company Number: None

PATIENT
  Sex: Female
  Weight: 76.5 kg

DRUGS (6)
  1. GEMCITABINE 1000 MG/M2 IV DAY Q AND DAY 8 [Suspect]
     Dosage: 1000 MG/M2 IV DAY Q AND DAY 8
     Route: 042
     Dates: start: 20041015
  2. CISPLATIN [Suspect]
     Dosage: 50MG/M2 IV DAY 1 CYCLES REPEATED EVERY 3 WEEKS
     Route: 042
  3. ADVAIR DISKUS 100/50 [Concomitant]
  4. ALBUTEROL [Concomitant]
  5. LORTAB [Concomitant]
  6. MIRALAX [Concomitant]

REACTIONS (7)
  - COAGULOPATHY [None]
  - DISEASE PROGRESSION [None]
  - HEPATIC FAILURE [None]
  - PANCYTOPENIA [None]
  - RENAL FAILURE [None]
  - RESPIRATORY DISTRESS [None]
  - SEPSIS [None]
